FAERS Safety Report 6848969-X (Version None)
Quarter: 2010Q3

REPORT INFORMATION
  Report Type: 
  Country: None (occurrence: None)
  Receive Date: 20100716
  Receipt Date: 20070924
  Transmission Date: 20110219
  Serious: No
  Sender: FDA-Public Use
  Company Number: US-PFIZER INC-2007081133

PATIENT
  Sex: Female
  Weight: 55.909 kg

DRUGS (8)
  1. CHANTIX [Suspect]
     Indication: SMOKING CESSATION THERAPY
     Dates: start: 20070911
  2. AVAPRO [Concomitant]
  3. DYAZIDE [Concomitant]
  4. ATENOLOL [Concomitant]
  5. LEXAPRO [Concomitant]
  6. XANAX [Concomitant]
  7. NAPROXEN [Concomitant]
  8. CLARITIN [Concomitant]

REACTIONS (1)
  - NAUSEA [None]
